FAERS Safety Report 7152556-6 (Version None)
Quarter: 2010Q4

REPORT INFORMATION
  Report Type: 
  Country: None (occurrence: None)
  Receive Date: 20101209
  Receipt Date: 20101209
  Transmission Date: 20110411
  Serious: No
  Sender: FDA-Public Use
  Company Number: None

PATIENT
  Age: 68 Year
  Sex: Female
  Weight: 56.4 kg

DRUGS (1)
  1. REGLAN [Suspect]

REACTIONS (2)
  - DIARRHOEA [None]
  - DISCOMFORT [None]
